FAERS Safety Report 4839512-5 (Version None)
Quarter: 2005Q4

REPORT INFORMATION
  Report Type: 
  Country: None (occurrence: None)
  Receive Date: 20051129
  Receipt Date: 20051004
  Transmission Date: 20060501
  Serious: Yes (Hospitalization, Other)
  Sender: FDA-Public Use
  Company Number: US-MERCK-0510USA03128

PATIENT
  Age: 56 Year
  Sex: Female
  Weight: 75 kg

DRUGS (1)
  1. VIOXX [Suspect]
     Route: 048

REACTIONS (3)
  - ATRIOVENTRICULAR BLOCK [None]
  - CARDIAC FAILURE CONGESTIVE [None]
  - MYOCARDIAL INFARCTION [None]
